FAERS Safety Report 4647540-8 (Version None)
Quarter: 2005Q2

REPORT INFORMATION
  Report Type: 
  Country: None (occurrence: None)
  Receive Date: 20050428
  Receipt Date: 20050225
  Transmission Date: 20051028
  Serious: Yes (Hospitalization)
  Sender: FDA-Public Use
  Company Number: FR-MERCK-0502FRA00082

PATIENT
  Age: 90 Year
  Sex: Female
  Weight: 63 kg

DRUGS (8)
  1. ZOCOR [Suspect]
     Route: 048
     Dates: start: 20041101, end: 20041122
  2. AMIODARONE HYDROCHLORIDE [Suspect]
     Route: 048
     Dates: start: 20041101, end: 20041122
  3. DIGOXIN [Suspect]
     Route: 048
     Dates: start: 20041101, end: 20041122
  4. LORAZEPAM [Concomitant]
     Route: 048
     Dates: start: 20041101
  5. BISOPROLOL [Concomitant]
     Route: 048
     Dates: start: 20041101, end: 20041122
  6. FUROSEMIDE [Concomitant]
     Route: 048
     Dates: start: 20041101
  7. FLUINDIONE [Suspect]
     Route: 048
     Dates: start: 20041101, end: 20041122
  8. ALLOPURINOL [Suspect]
     Route: 048
     Dates: end: 20041101

REACTIONS (4)
  - DRUG INTERACTION [None]
  - FALL [None]
  - INTERNATIONAL NORMALISED RATIO INCREASED [None]
  - MALAISE [None]
